FAERS Safety Report 24523803 (Version 3)
Quarter: 2025Q1

REPORT INFORMATION
  Report Type: Spontaneous
  Country: CA (occurrence: CA)
  Receive Date: 20241018
  Receipt Date: 20250206
  Transmission Date: 20250408
  Serious: Yes (Other)
  Sender: BAUSCH AND LOMB
  Company Number: CA-BAUSCHBL-2024BNL035844

PATIENT
  Sex: Female

DRUGS (1)
  1. LUMIFY [Suspect]
     Active Substance: BRIMONIDINE TARTRATE
     Indication: Postoperative care
     Route: 047

REACTIONS (7)
  - Syncope [Recovered/Resolved]
  - Loss of consciousness [Recovered/Resolved]
  - Nausea [Recovered/Resolved]
  - Pallor [Recovered/Resolved]
  - Cold sweat [Recovered/Resolved]
  - Blood pressure decreased [Recovered/Resolved]
  - Product use in unapproved indication [Unknown]

NARRATIVE: CASE EVENT DATE: 20240801
